FAERS Safety Report 6020783 (Version 2)
Quarter: 2019Q3

REPORT INFORMATION
  Report Type: Spontaneous
  Country: GR (occurrence: GR)
  Receive Date: 20060407
  Receipt Date: 20190729
  Transmission Date: 20191005
  Serious: Yes (Other)
  Sender: FDA-Public Use
  Company Number: GR-GLAXOSMITHKLINE-B0419250A

PATIENT
  Age: 55 Year
  Sex: Female

DRUGS (8)
  1. AMOXIL [Suspect]
     Active Substance: AMOXICILLIN
     Indication: PROPHYLAXIS
     Route: 048
     Dates: start: 20060308, end: 20060308
  2. XEFO RAPID [Suspect]
     Active Substance: LORNOXICAM
     Indication: DENTAL IMPLANTATION
     Dosage: UNK
  3. XEFO RAPID [Suspect]
     Active Substance: LORNOXICAM
     Indication: PREOPERATIVE CARE
  4. UBISTESIN FORTE [Concomitant]
     Indication: LOCAL ANAESTHESIA
     Dosage: UNK
     Dates: start: 20060308, end: 20060308
  5. UBISTESIN [Concomitant]
     Indication: LOCAL ANAESTHESIA
     Dosage: UNK
     Dates: start: 20060308, end: 20060308
  6. UBISTESIN FORTE [Concomitant]
     Indication: HAEMOSTASIS
  7. LORNOXICAM [Suspect]
     Active Substance: LORNOXICAM
     Indication: POST PROCEDURAL HAEMORRHAGE
     Dates: start: 20060308, end: 20060308
  8. DEPON [Concomitant]
     Active Substance: ACETAMINOPHEN
     Indication: POSTOPERATIVE ANALGESIA
     Dosage: UNK
     Route: 048
     Dates: start: 20060308, end: 20060308

REACTIONS (3)
  - Vulvovaginal swelling [Unknown]
  - Laryngeal oedema [Unknown]
  - Hypersensitivity [Not Recovered/Not Resolved]

NARRATIVE: CASE EVENT DATE: 20060308
